FAERS Safety Report 6746622-4 (Version None)
Quarter: 2010Q2

REPORT INFORMATION
  Report Type: 
  Country: None (occurrence: None)
  Receive Date: 20100528
  Receipt Date: 20100126
  Transmission Date: 20101027
  Serious: No
  Sender: FDA-Public Use
  Company Number: US-ASTRAZENECA-2010SE04763

PATIENT
  Sex: Male

DRUGS (5)
  1. PRILOSEC OTC [Suspect]
     Indication: ERUCTATION
     Route: 048
     Dates: start: 20100121, end: 20100125
  2. ANTIHYPERTENSIVES [Concomitant]
     Dosage: UNKNOWN
  3. CHOLESTEROL AND TRIGLYCERIDE REDUCERS [Concomitant]
     Dosage: UNNKOWN
  4. MUCUS RELIEF [Concomitant]
     Dosage: UNKNOWN
  5. CLARITIN /00413701/ [Concomitant]
     Dosage: UNKNOWN

REACTIONS (2)
  - CONDITION AGGRAVATED [None]
  - ERUCTATION [None]
